FAERS Safety Report 23819311 (Version 1)
Quarter: 2024Q2

REPORT INFORMATION
  Report Type: Spontaneous
  Country: MY (occurrence: MY)
  Receive Date: 20240506
  Receipt Date: 20240506
  Transmission Date: 20240716
  Serious: Yes (Other)
  Sender: FDA-Public Use
  Company Number: MY-JNJFOC-20240482086

PATIENT
  Age: 75 Year
  Sex: Male

DRUGS (2)
  1. SPORANOX [Suspect]
     Active Substance: ITRACONAZOLE
     Indication: Phaeohyphomycosis
     Route: 048
  2. SPORANOX [Suspect]
     Active Substance: ITRACONAZOLE
     Indication: Mycetoma mycotic

REACTIONS (2)
  - Granuloma [Unknown]
  - Lymphadenopathy [Unknown]
